FAERS Safety Report 15283282 (Version 3)
Quarter: 2018Q3

REPORT INFORMATION
  Report Type: Report from Study
  Country: US (occurrence: US)
  Receive Date: 20180816
  Receipt Date: 20180906
  Transmission Date: 20181010
  Serious: Yes (Other)
  Sender: FDA-Public Use
  Company Number: US-GILEAD-2018-0355696

PATIENT
  Age: 84 Year
  Sex: Female

DRUGS (5)
  1. XARELTO [Concomitant]
     Active Substance: RIVAROXABAN
  2. TYVASO [Concomitant]
     Active Substance: TREPROSTINIL
  3. ELIQUIS [Concomitant]
     Active Substance: APIXABAN
  4. AMBRISENTAN [Suspect]
     Active Substance: AMBRISENTAN
     Indication: PRODUCT USED FOR UNKNOWN INDICATION
     Dosage: 5 MG, QD
     Route: 065
     Dates: start: 20180809
  5. ADEMPAS [Concomitant]
     Active Substance: RIOCIGUAT

REACTIONS (8)
  - Abscess oral [Not Recovered/Not Resolved]
  - Tooth abscess [Not Recovered/Not Resolved]
  - Tooth infection [Unknown]
  - Headache [Unknown]
  - Pneumonia [Not Recovered/Not Resolved]
  - Malaise [Unknown]
  - Nausea [Unknown]
  - Dizziness [Unknown]
